FAERS Safety Report 6903087-7 (Version None)
Quarter: 2010Q3

REPORT INFORMATION
  Report Type: 
  Country: None (occurrence: None)
  Receive Date: 20100803
  Receipt Date: 20080620
  Transmission Date: 20110219
  Serious: No
  Sender: FDA-Public Use
  Company Number: US-PFIZER INC-2008052517

PATIENT
  Sex: Male

DRUGS (12)
  1. LYRICA [Suspect]
     Indication: DIABETIC NEUROPATHY
     Dates: start: 20070101
  2. TOPROL-XL [Concomitant]
  3. ISOSORBIDE [Concomitant]
  4. ALDACTONE [Concomitant]
  5. VALSARTAN [Concomitant]
  6. HUMULIN R [Concomitant]
  7. BYETTA [Concomitant]
  8. LASIX [Concomitant]
  9. ZOCOR [Concomitant]
  10. ZOLOFT [Concomitant]
  11. MIRAPEX [Concomitant]
  12. XANAX [Concomitant]

REACTIONS (2)
  - WEIGHT DECREASED [None]
  - WEIGHT INCREASED [None]
